FAERS Safety Report 4318933-3 (Version None)
Quarter: 2004Q1

REPORT INFORMATION
  Report Type: 
  Country: None (occurrence: None)
  Receive Date: 20040317
  Receipt Date: 20040317
  Transmission Date: 20041129
  Serious: No
  Sender: FDA-Public Use
  Company Number: None

PATIENT
  Age: 51 Year
  Sex: Male
  Weight: 54.4316 kg

DRUGS (8)
  1. RISPERIDONE [Suspect]
     Indication: ABNORMAL BEHAVIOUR
     Dosage: PO BID STARTED BEFORE 3/1/04 UNTIL 3/8
     Route: 048
     Dates: end: 20040308
  2. HALOPERIDOL [Suspect]
     Indication: DEMENTIA ALZHEIMER'S TYPE
     Dosage: ONE TIME IM
     Route: 030
     Dates: start: 20040303
  3. VALPROLIC ACID [Concomitant]
  4. VENLAPAXINE [Concomitant]
  5. TAMSULOSIN [Concomitant]
  6. FUROSEMIDE [Concomitant]
  7. KCL TAB [Concomitant]
  8. SORBITOL [Concomitant]

REACTIONS (6)
  - CLONUS [None]
  - HYPERREFLEXIA [None]
  - HYPERTONIA [None]
  - MUSCLE SPASTICITY [None]
  - NEUROLEPTIC MALIGNANT SYNDROME [None]
  - TARDIVE DYSKINESIA [None]
